FAERS Safety Report 15746149 (Version 1)
Quarter: 2018Q4

REPORT INFORMATION
  Report Type: Spontaneous
  Country: GB (occurrence: GB)
  Receive Date: 20181220
  Receipt Date: 20181220
  Transmission Date: 20190205
  Serious: Yes (Death, Other)
  Sender: FDA-Public Use
  Company Number: GB-PFIZER INC-20480

PATIENT
  Age: 64 Year
  Sex: Female

DRUGS (2)
  1. NAVELBINE [Suspect]
     Active Substance: VINORELBINE TARTRATE
     Indication: NON-SMALL CELL LUNG CANCER STAGE IIIB
     Dosage: 60 MG/M2, CYCLIC
     Route: 048
  2. CARBOPLATIN. [Suspect]
     Active Substance: CARBOPLATIN
     Indication: NON-SMALL CELL LUNG CANCER STAGE IIIB
     Dosage: UNK

REACTIONS (3)
  - Pyrexia [Not Recovered/Not Resolved]
  - Neutropenic sepsis [Fatal]
  - Chills [Not Recovered/Not Resolved]
